FAERS Safety Report 14420019 (Version 1)
Quarter: 2018Q1

REPORT INFORMATION
  Report Type: Spontaneous
  Country: CA (occurrence: CA)
  Receive Date: 20180122
  Receipt Date: 20180122
  Transmission Date: 20180509
  Serious: Yes (Hospitalization)
  Sender: FDA-Public Use
  Company Number: CA-PFIZER INC-2018025866

PATIENT
  Age: 62 Year
  Sex: Female

DRUGS (5)
  1. REVATIO [Suspect]
     Active Substance: SILDENAFIL CITRATE
     Indication: PULMONARY HYPERTENSION
     Dosage: 20 MG, 3X/DAY
     Dates: start: 20061212
  2. CELEBREX [Concomitant]
     Active Substance: CELECOXIB
  3. AMLODIPINE [Concomitant]
     Active Substance: AMLODIPINE BESYLATE
  4. OPSUMIT [Concomitant]
     Active Substance: MACITENTAN
  5. PANTOLOC /01263201/ [Concomitant]
     Active Substance: PANTOPRAZOLE SODIUM

REACTIONS (3)
  - Muscle spasms [Recovered/Resolved]
  - Blood calcium decreased [Recovered/Resolved]
  - Blood magnesium decreased [Recovered/Resolved]
